FAERS Safety Report 12573378 (Version 1)
Quarter: 2016Q3

REPORT INFORMATION
  Report Type: Spontaneous
  Country: US (occurrence: None)
  Receive Date: 20160719
  Receipt Date: 20160719
  Transmission Date: 20161109
  Serious: No
  Sender: FDA-Public Use
  Company Number: None

PATIENT
  Sex: Female

DRUGS (1)
  1. ORENCIA [Suspect]
     Active Substance: ABATACEPT
     Indication: RHEUMATOID ARTHRITIS
     Dosage: 125MG (1 SYRINGE) EVERY 10 DAYS SUBCUTANEOUSLY
     Route: 058
     Dates: start: 20131003

REACTIONS (2)
  - Oropharyngeal pain [None]
  - Aphthous ulcer [None]
